FAERS Safety Report 9665437 (Version 1)
Quarter: 2013Q4

REPORT INFORMATION
  Report Type: Spontaneous
  Country: US (occurrence: None)
  Receive Date: 20131031
  Receipt Date: 20131031
  Transmission Date: 20140711
  Serious: Yes (Hospitalization)
  Sender: FDA-Public Use
  Company Number: None

PATIENT
  Age: 64 Year
  Sex: Female
  Weight: 78.02 kg

DRUGS (7)
  1. BACLOFEN [Suspect]
     Indication: MUSCLE STRAIN
     Route: 048
     Dates: start: 20130923, end: 20130924
  2. TOPROL [Concomitant]
  3. ASA [Concomitant]
  4. PROTONIX [Concomitant]
  5. ZOCOR [Concomitant]
  6. FELDEN [Concomitant]
  7. WELLBUTRIN [Concomitant]

REACTIONS (4)
  - Somnolence [None]
  - Dyspnoea [None]
  - Dyskinesia [None]
  - Depressed level of consciousness [None]
